FAERS Safety Report 7533173 (Version 2)
Quarter: 2012Q4

REPORT INFORMATION
  Report Type: 
  Country: JP (occurrence: JP)
  Receive Date: 20100809
  Receipt Date: 20121004
  Transmission Date: 20130627
  Serious: Yes (Other)
  Sender: FDA-Public Use
  Company Number: JP-SANOFI-AVENTIS-2010SA043934

PATIENT
  Age: 74 Year
  Sex: Male
  Weight: 50.75 kg

DRUGS (11)
  1. TAXOTERE [Suspect]
     Indication: NON-SMALL CELL LUNG CANCER
     Dosage: 60 mg/m2 on day 6
     Route: 041
     Dates: start: 20100712, end: 20100712
  2. CERNILTON [Concomitant]
     Dosage: dose as used: 2 tablets
     Route: 048
     Dates: start: 20100628, end: 20100718
  3. FLIVAS [Concomitant]
     Route: 048
     Dates: start: 20100628, end: 20100718
  4. LOXONIN [Concomitant]
     Indication: CANCER PAIN
     Route: 048
     Dates: start: 20100627, end: 20100718
  5. SELBEX [Concomitant]
     Indication: GASTRITIS
     Route: 048
     Dates: start: 20100627, end: 20100718
  6. NOVAMIN [Concomitant]
     Indication: VOMITING
     Route: 048
     Dates: start: 20100707, end: 20100718
  7. MAGNESIUM OXIDE [Concomitant]
     Indication: CONSTIPATION
     Route: 048
     Dates: start: 20100707, end: 20100718
  8. GASTER [Concomitant]
     Indication: GASTRIC ULCER
     Route: 048
     Dates: start: 20100707, end: 20100718
  9. OXINORM [Concomitant]
     Indication: CANCER PAIN
     Route: 048
     Dates: start: 20100706
  10. GRANISETRON [Concomitant]
     Indication: PREMEDICATION
     Dates: start: 20100712, end: 20100712
  11. DEXAMETHASONE SODIUM PHOSPHATE [Concomitant]
     Dates: start: 20100712, end: 20100712

REACTIONS (3)
  - Nephropathy toxic [Recovered/Resolved]
  - Beta 2 microglobulin urine increased [Recovered/Resolved]
  - Beta-N-acetyl-D-glucosaminidase increased [Recovered/Resolved]
